FAERS Safety Report 8464485 (Version 2)
Quarter: 2013Q3

REPORT INFORMATION
  Report Type: Spontaneous
  Country: US (occurrence: US)
  Receive Date: 20120319
  Receipt Date: 20130701
  Transmission Date: 20140515
  Serious: No
  Sender: FDA-Public Use
  Company Number: US-BIOGENIDEC-2012BI009381

PATIENT
  Sex: Male

DRUGS (2)
  1. TYSABRI [Suspect]
     Indication: MULTIPLE SCLEROSIS
     Route: 042
     Dates: start: 20070226
  2. BACLOFEN PO [Concomitant]
     Indication: MULTIPLE SCLEROSIS
     Dates: start: 2011

REACTIONS (14)
  - Mobility decreased [Recovered/Resolved]
  - Fall [Recovered/Resolved]
  - Nasal congestion [Unknown]
  - Dysuria [Recovered/Resolved]
  - Neurogenic bladder [Not Recovered/Not Resolved]
  - Toothache [Recovered/Resolved]
  - Pain in extremity [Recovered/Resolved]
  - Hot flush [Recovered/Resolved]
  - Multiple sclerosis [Not Recovered/Not Resolved]
  - Pyrexia [Recovered/Resolved]
  - Sinusitis [Recovered/Resolved]
  - Tooth abscess [Recovered/Resolved]
  - Drug effect decreased [Not Recovered/Not Resolved]
  - Urinary tract infection [Recovered/Resolved]
